FAERS Safety Report 14838882 (Version 1)
Quarter: 2018Q2

REPORT INFORMATION
  Report Type: Spontaneous
  Country: PT (occurrence: PT)
  Receive Date: 20180502
  Receipt Date: 20180502
  Transmission Date: 20180711
  Serious: Yes (Other)
  Sender: FDA-Public Use
  Company Number: PT-PFIZER INC-2018175913

PATIENT
  Age: 53 Year
  Sex: Female
  Weight: 62 kg

DRUGS (3)
  1. PARACETAMOL [Concomitant]
     Active Substance: ACETAMINOPHEN
  2. BROMELAIN [Concomitant]
     Active Substance: BROMELAINS
  3. DOXYCYCLINE. [Suspect]
     Active Substance: DOXYCYCLINE
     Dosage: 100 MG, 2X/DAY (12/12H)
     Route: 048
     Dates: start: 20180313, end: 20180316

REACTIONS (3)
  - Rash papular [Unknown]
  - Lip oedema [Unknown]
  - Cheilitis [Unknown]

NARRATIVE: CASE EVENT DATE: 20180315
